FAERS Safety Report 4364520-0 (Version None)
Quarter: 2004Q2

REPORT INFORMATION
  Report Type: 
  Country: None (occurrence: None)
  Receive Date: 20040519
  Receipt Date: 20030603
  Transmission Date: 20050107
  Serious: Yes (Hospitalization)
  Sender: FDA-Public Use
  Company Number: 03P-163-0220644-00

PATIENT
  Age: 43 Year
  Sex: Female

DRUGS (2)
  1. ERYTHROMYCIN BASE FILMTAB (ERYTHROMYCIN BASE FILMTABS) (ERYTHROMYCIN) [Suspect]
  2. SERETIDE MITE [Suspect]

REACTIONS (1)
  - STEVENS-JOHNSON SYNDROME [None]
